FAERS Safety Report 6022240-0 (Version None)
Quarter: 2008Q4

REPORT INFORMATION
  Report Type: 
  Country: None (occurrence: None)
  Receive Date: 20081229
  Receipt Date: 20081211
  Transmission Date: 20090506
  Serious: Yes (Other)
  Sender: FDA-Public Use
  Company Number: AU-PFIZER INC-2008060109

PATIENT

DRUGS (6)
  1. BLINDED *PLACEBO [Suspect]
     Dosage: UNK
     Dates: start: 20080612, end: 20080717
  2. BLINDED ZIPRASIDONE HCL [Suspect]
     Dosage: UNK
     Dates: start: 20080612, end: 20080717
  3. LITHIUM CARBONATE [Suspect]
     Route: 048
  4. DIAZEPAM [Concomitant]
     Route: 048
     Dates: start: 20080715, end: 20080715
  5. ACETAMINOPHEN [Concomitant]
     Route: 048
     Dates: start: 20080701, end: 20080701
  6. LOPERAMIDE HCL [Concomitant]
     Route: 048

REACTIONS (1)
  - INTENTIONAL SELF-INJURY [None]
